FAERS Safety Report 9073667 (Version 1)
Quarter: 2013Q1

REPORT INFORMATION
  Report Type: Report from Study
  Country: US (occurrence: US)
  Receive Date: 20130129
  Receipt Date: 20130129
  Transmission Date: 20140127
  Serious: No
  Sender: FDA-Public Use
  Company Number: US-ABBOTT-12P-163-0929246-00

PATIENT
  Sex: Female
  Weight: 93.07 kg

DRUGS (4)
  1. HUMIRA 40 MG/0.8 ML PEN [Suspect]
     Indication: PSORIATIC ARTHROPATHY
     Dates: start: 201112
  2. FOLIC ACID [Concomitant]
     Indication: PSORIATIC ARTHROPATHY
  3. LISINOPRIL/HCTZ [Concomitant]
     Indication: HYPERTENSION
  4. NABUMETONE [Concomitant]
     Indication: PAIN

REACTIONS (3)
  - Local swelling [Recovering/Resolving]
  - Nasopharyngitis [Recovered/Resolved]
  - Arthralgia [Recovered/Resolved]
